FAERS Safety Report 9229544 (Version 1)
Quarter: 2013Q2

REPORT INFORMATION
  Report Type: Spontaneous
  Country: JP (occurrence: JP)
  Receive Date: 20130413
  Receipt Date: 20130413
  Transmission Date: 20140414
  Serious: Yes (Hospitalization)
  Sender: FDA-Public Use
  Company Number: JP-B.I. PHARMACEUTICALS,INC./RIDGEFIELD-2013-BI-09420NB

PATIENT
  Age: 78 Year
  Sex: Male
  Weight: 51.3 kg

DRUGS (6)
  1. PRAZAXA [Suspect]
     Dosage: 150 MG
     Route: 048
  2. PLETAAL [Concomitant]
     Dosage: 200 MG
     Route: 048
  3. AVOLVE [Concomitant]
     Dosage: 0.5 MG
     Route: 048
  4. NORVASC [Concomitant]
     Dosage: 5 MG
     Route: 048
  5. FEBURIC [Concomitant]
     Dosage: 10 MG
     Route: 048
  6. URIEF [Concomitant]
     Dosage: 8 MG
     Route: 048

REACTIONS (3)
  - Diabetes mellitus [Unknown]
  - Renal impairment [Unknown]
  - Contraindication to medical treatment [Unknown]
